FAERS Safety Report 21105802 (Version 1)
Quarter: 2022Q3

REPORT INFORMATION
  Report Type: Other
  Country: US (occurrence: None)
  Receive Date: 20220720
  Receipt Date: 20220720
  Transmission Date: 20221027
  Serious: Yes (Hospitalization)
  Sender: FDA-Public Use
  Company Number: US-ROCHE-3142799

PATIENT
  Age: 47 Year
  Sex: Male

DRUGS (9)
  1. RITUXIMAB [Suspect]
     Active Substance: RITUXIMAB
     Indication: Chronic lymphocytic leukaemia
     Dosage: 6 CYCLES
     Route: 065
     Dates: end: 20210312
  2. RITUXIMAB [Suspect]
     Active Substance: RITUXIMAB
     Indication: Lymphocytic lymphoma
  3. CYCLOPHOSPHAMIDE [Suspect]
     Active Substance: CYCLOPHOSPHAMIDE
     Indication: Chronic lymphocytic leukaemia
     Dosage: 6 CYCLES
     Route: 065
  4. CYCLOPHOSPHAMIDE [Suspect]
     Active Substance: CYCLOPHOSPHAMIDE
     Indication: Lymphocytic lymphoma
  5. FLUDARABINE [Suspect]
     Active Substance: FLUDARABINE PHOSPHATE
     Indication: Chronic lymphocytic leukaemia
     Dosage: 6 CYCLES
     Route: 065
  6. FLUDARABINE [Suspect]
     Active Substance: FLUDARABINE PHOSPHATE
     Indication: Lymphocytic lymphoma
  7. VENETOCLAX [Concomitant]
     Active Substance: VENETOCLAX
     Route: 065
     Dates: end: 20210312
  8. JANSSEN COVID-19 VACCINE [Concomitant]
     Active Substance: AD26.COV2.S
     Dosage: JOHNSON AND JOHNSON COVID VACCINATION
     Route: 065
     Dates: start: 20210327
  9. PREDNISONE [Concomitant]
     Active Substance: PREDNISONE
     Dosage: 12 WEEKS AFTER INITIAL INFECTION TO TREAT POSSIBLE POST-COVID ORGANIZING PNEUMONIA.
     Route: 065

REACTIONS (1)
  - COVID-19 [Unknown]
